FAERS Safety Report 7020751-2 (Version None)
Quarter: 2010Q3

REPORT INFORMATION
  Report Type: 
  Country: None (occurrence: None)
  Receive Date: 20100927
  Receipt Date: 20100910
  Transmission Date: 20110219
  Serious: Yes (Other)
  Sender: FDA-Public Use
  Company Number: 2010004041

PATIENT
  Age: 62 Year
  Sex: Male

DRUGS (11)
  1. ERLOTINIB (ERLOTINIB) (TABLET) (ERLOTINIB) [Suspect]
     Indication: LUNG ADENOCARCINOMA
     Dosage: (150 MG, QD), ORAL
     Route: 048
     Dates: start: 20090121, end: 20100301
  2. DEXAMETHASONE [Suspect]
     Indication: LUNG ADENOCARCINOMA
     Dosage: (2 MG, QD), ORAL
     Route: 048
     Dates: start: 20090121, end: 20100301
  3. LANSOPRAZOLE [Concomitant]
  4. HOKUNALIN (TULOBUTEROL HYDROCHLORIDE) [Concomitant]
  5. MUCODYNE (CARBOCISTEINE) [Concomitant]
  6. PROCATEROL HCL [Concomitant]
  7. ZOMETA [Concomitant]
  8. AMINOPHYLLINE [Concomitant]
  9. MORPHINE [Concomitant]
  10. POLAPREZINC (POLAPREZINC) [Concomitant]
  11. POSTERISAN (POSTERISAN) [Concomitant]

REACTIONS (4)
  - GASTRIC ULCER [None]
  - MALIGNANT NEOPLASM PROGRESSION [None]
  - NON-SMALL CELL LUNG CANCER METASTATIC [None]
  - PULMONARY MYCOSIS [None]
